FAERS Safety Report 7170095-3 (Version None)
Quarter: 2010Q4

REPORT INFORMATION
  Report Type: 
  Country: None (occurrence: None)
  Receive Date: 20101217
  Receipt Date: 20101207
  Transmission Date: 20110411
  Serious: Yes (Congenital Anomaly)
  Sender: FDA-Public Use
  Company Number: US-ROCHE-644458

PATIENT
  Sex: Male
  Weight: 3 kg

DRUGS (6)
  1. MYCOPHENOLATE MOFETIL [Suspect]
     Dosage: FREQUENCY: DAILY
     Route: 064
  2. PROGRAF [Concomitant]
     Indication: HEART TRANSPLANT
     Dosage: STRENGTH: 2 MG
     Route: 064
     Dates: end: 20050101
  3. PROGRAF [Concomitant]
     Route: 064
     Dates: start: 20050101, end: 20050719
  4. PRILOSEC [Concomitant]
     Dosage: FREQUENCY: DAILY
     Route: 064
  5. EPOGEN [Concomitant]
     Route: 064
     Dates: end: 20050801
  6. PRENATE [Concomitant]

REACTIONS (2)
  - BICUSPID AORTIC VALVE [None]
  - HEART DISEASE CONGENITAL [None]
